FAERS Safety Report 21280051 (Version 1)
Quarter: 2022Q3

REPORT INFORMATION
  Report Type: Spontaneous
  Country: US (occurrence: US)
  Receive Date: 20220901
  Receipt Date: 20220901
  Transmission Date: 20221026
  Serious: No
  Sender: FDA-Public Use
  Company Number: US-SUN PHARMACEUTICAL INDUSTRIES LTD-2022R1-347083

PATIENT
  Sex: Female
  Weight: 54 kg

DRUGS (1)
  1. SUMATRIPTAN [Suspect]
     Active Substance: SUMATRIPTAN
     Indication: Migraine
     Dosage: UNK, 1 TABLET WHEN REQUIRED
     Route: 048

REACTIONS (2)
  - Drug ineffective [Unknown]
  - Therapy cessation [Unknown]
